FAERS Safety Report 5028170-5 (Version None)
Quarter: 2006Q2

REPORT INFORMATION
  Report Type: 
  Country: None (occurrence: None)
  Receive Date: 20060609
  Receipt Date: 20060524
  Transmission Date: 20061013
  Serious: Yes (Hospitalization)
  Sender: FDA-Public Use
  Company Number: 225956

PATIENT
  Age: 67 Year
  Sex: Female
  Weight: 55.3 kg

DRUGS (4)
  1. AVASTIN [Suspect]
     Indication: COLORECTAL CANCER METASTATIC
     Dosage: 2500 MG BID ORAL291 MG Q2W INTRAVENOUS
     Route: 042
     Dates: start: 20060512
  2. CAPECITABINE (CAPECITABINE) [Suspect]
     Indication: COLORECTAL CANCER METASTATIC
     Dosage: 2500 MG BID ORAL
     Route: 048
     Dates: start: 20060512
  3. OXALIPLATIN (OXALIPLATIN) [Suspect]
     Indication: COLORECTAL CANCER METASTATIC
     Dosage: 135 MG Q2 W INTRAVENOUS
     Route: 042
     Dates: start: 20060512
  4. XALATAN [Concomitant]

REACTIONS (8)
  - ABDOMINAL PAIN [None]
  - BLOOD POTASSIUM DECREASED [None]
  - BLOOD SODIUM DECREASED [None]
  - DIARRHOEA [None]
  - INFECTION [None]
  - NAUSEA [None]
  - NEUTROPHIL COUNT DECREASED [None]
  - VOMITING [None]
